FAERS Safety Report 7777280-8 (Version None)
Quarter: 2011Q3

REPORT INFORMATION
  Report Type: 
  Country: None (occurrence: None)
  Receive Date: 20110926
  Receipt Date: 20110919
  Transmission Date: 20111222
  Serious: Yes (Hospitalization, Other)
  Sender: FDA-Public Use
  Company Number: PHEH2005US09569

PATIENT
  Sex: Female
  Weight: 86.167 kg

DRUGS (13)
  1. PROVERA [Suspect]
     Indication: MENOPAUSE
     Dosage: 2.5 MG, UNK
     Route: 048
     Dates: start: 19850101, end: 19970101
  2. GLUCOSAMINE [Concomitant]
  3. AMBIEN [Concomitant]
  4. MULTI-VITAMIN [Concomitant]
  5. ESTRADIOL [Suspect]
     Indication: MENOPAUSE
     Dates: start: 19880101, end: 19970101
  6. MEDROXYPROGESTERONE [Suspect]
     Indication: MENOPAUSE
     Dosage: 2.5 MG, UNK
     Route: 048
     Dates: start: 19850101, end: 19970101
  7. CALCIUM CITRATE [Concomitant]
  8. ESTRADERM [Suspect]
     Indication: MENOPAUSE
     Dosage: 0.05 MG, UNK
     Route: 062
     Dates: start: 19880101, end: 19970101
  9. EFFEXOR [Concomitant]
     Indication: HOT FLUSH
     Dates: start: 19970101, end: 19990101
  10. BISOPROLOL FUMARATE [Concomitant]
  11. STOOL SOFTENER [Concomitant]
  12. ASPIRIN [Concomitant]
  13. PREMARIN [Suspect]
     Dates: start: 19880101, end: 19960101

REACTIONS (51)
  - BONE MARROW DISORDER [None]
  - BREAST MASS [None]
  - RADIATION INJURY [None]
  - HYPERTENSION [None]
  - CYSTITIS HAEMORRHAGIC [None]
  - HYPERGLYCAEMIA [None]
  - BREAST CANCER [None]
  - BREAST CALCIFICATIONS [None]
  - FIBROADENOMA OF BREAST [None]
  - CYSTOCELE [None]
  - UTERINE PROLAPSE [None]
  - HAEMATURIA [None]
  - INTERVERTEBRAL DISC DEGENERATION [None]
  - BURSITIS [None]
  - AXILLARY PAIN [None]
  - ASTHENIA [None]
  - INTERVERTEBRAL DISC DISORDER [None]
  - DYSPEPSIA [None]
  - OSTEOPENIA [None]
  - ATROPHIC VULVOVAGINITIS [None]
  - THYROID NEOPLASM [None]
  - RECTAL HAEMORRHAGE [None]
  - ANXIETY [None]
  - FLATULENCE [None]
  - CERVICITIS [None]
  - HEPATIC CYST [None]
  - ROTATOR CUFF SYNDROME [None]
  - PERIARTHRITIS [None]
  - INJURY [None]
  - SCAR [None]
  - SWELLING [None]
  - ABDOMINAL PAIN UPPER [None]
  - DIVERTICULITIS [None]
  - BACK PAIN [None]
  - RENAL CYST [None]
  - GASTROOESOPHAGEAL REFLUX DISEASE [None]
  - DYSPHAGIA [None]
  - PHYSICAL DISABILITY [None]
  - CHILLS [None]
  - NAUSEA [None]
  - GASTROINTESTINAL DISORDER [None]
  - DIARRHOEA [None]
  - CHOLECYSTITIS CHRONIC [None]
  - URETHRAL STENOSIS [None]
  - FATIGUE [None]
  - FIBROCYSTIC BREAST DISEASE [None]
  - OSTEOSCLEROSIS [None]
  - CHOLESTEROSIS [None]
  - SPINAL OSTEOARTHRITIS [None]
  - PAIN [None]
  - BIOPSY ENDOMETRIUM ABNORMAL [None]
